FAERS Safety Report 4300243-1 (Version None)
Quarter: 2004Q1

REPORT INFORMATION
  Report Type: 
  Country: None (occurrence: None)
  Receive Date: 20040218
  Receipt Date: 20040204
  Transmission Date: 20041129
  Serious: Yes (Death)
  Sender: FDA-Public Use
  Company Number: FR_040203543

PATIENT
  Age: 56 Year
  Sex: Female
  Weight: 38 kg

DRUGS (11)
  1. ZYPREXA [Suspect]
     Dosage: 1 DSG FORM/DAY
     Dates: start: 20031217
  2. AMOXICILLIN TRIHYDRATE [Concomitant]
  3. LEXOMIL (BROMAZEPAM) [Concomitant]
  4. THERALENE (ALIMEMAZINE TARTRATE) [Concomitant]
  5. TERCIAN (CYAMEMAZINE) [Concomitant]
  6. ARTANE [Concomitant]
  7. RISPERDAL [Concomitant]
  8. SEROPRAM (CITALOPRAM HYDROBROMIDE) [Concomitant]
  9. PROGESTERONE [Concomitant]
  10. SEGLOR (DIHYDROERGOTAMINE MESILATE) [Concomitant]
  11. IMOVANE (ZOPICLONE) [Concomitant]

REACTIONS (1)
  - CYANOSIS [None]
